FAERS Safety Report 13311573 (Version 2)
Quarter: 2017Q4

REPORT INFORMATION
  Report Type: Spontaneous
  Country: US (occurrence: US)
  Receive Date: 20170309
  Receipt Date: 20171123
  Transmission Date: 20180320
  Serious: No
  Sender: FDA-Public Use
  Company Number: US-JNJFOC-20170302194

PATIENT
  Age: 14 Year
  Sex: Male

DRUGS (12)
  1. RISPERDAL [Suspect]
     Active Substance: RISPERIDONE
     Indication: AFFECTIVE DISORDER
     Route: 048
     Dates: start: 2006, end: 20061130
  2. RISPERDAL [Suspect]
     Active Substance: RISPERIDONE
     Indication: SEXUAL ABUSE
     Dosage: IN VARYING DOSES OF 3 MG TO 4 MG
     Route: 048
     Dates: start: 20060517, end: 20061025
  3. RISPERDAL [Suspect]
     Active Substance: RISPERIDONE
     Indication: SEXUAL ABUSE
     Route: 048
     Dates: end: 20070402
  4. INVEGA [Suspect]
     Active Substance: PALIPERIDONE
     Indication: AFFECTIVE DISORDER
     Route: 048
     Dates: start: 20070601, end: 20080131
  5. RISPERDAL [Suspect]
     Active Substance: RISPERIDONE
     Indication: AFFECTIVE DISORDER
     Route: 048
     Dates: start: 20070228, end: 20070330
  6. INVEGA [Suspect]
     Active Substance: PALIPERIDONE
     Indication: AFFECTIVE DISORDER
     Route: 048
     Dates: start: 20070418
  7. RISPERDAL [Suspect]
     Active Substance: RISPERIDONE
     Indication: AFFECTIVE DISORDER
     Dosage: IN VARYING DOSES OF 3 MG TO 4 MG
     Route: 048
     Dates: start: 20060517, end: 20061025
  8. RISPERDAL [Suspect]
     Active Substance: RISPERIDONE
     Indication: SEXUAL ABUSE
     Route: 048
     Dates: start: 20070228, end: 20070330
  9. RISPERDAL [Suspect]
     Active Substance: RISPERIDONE
     Indication: AFFECTIVE DISORDER
     Route: 048
     Dates: end: 20070402
  10. INVEGA [Suspect]
     Active Substance: PALIPERIDONE
     Indication: SEXUAL ABUSE
     Route: 048
     Dates: start: 20070601, end: 20080131
  11. RISPERDAL [Suspect]
     Active Substance: RISPERIDONE
     Indication: SEXUAL ABUSE
     Route: 048
     Dates: start: 2006, end: 20061130
  12. INVEGA [Suspect]
     Active Substance: PALIPERIDONE
     Indication: SEXUAL ABUSE
     Route: 048
     Dates: start: 20070418

REACTIONS (4)
  - Off label use [Unknown]
  - Product use in unapproved indication [Unknown]
  - Gynaecomastia [Unknown]
  - Emotional disorder [Unknown]

NARRATIVE: CASE EVENT DATE: 20060517
